FAERS Safety Report 16163143 (Version 1)
Quarter: 2019Q2

REPORT INFORMATION
  Report Type: Spontaneous
  Country: US (occurrence: US)
  Receive Date: 20190404
  Receipt Date: 20190404
  Transmission Date: 20190711
  Serious: Yes (Life-Threatening)
  Sender: FDA-Public Use
  Company Number: None

PATIENT
  Age: 50 Year
  Sex: Female
  Weight: 70 kg

DRUGS (20)
  1. ALBUTEROL/IPRATROPIUM [Concomitant]
     Active Substance: ALBUTEROL\IPRATROPIUM
     Dates: start: 20190302, end: 20190305
  2. BUDESONIDE. [Concomitant]
     Active Substance: BUDESONIDE
     Dates: start: 20190301, end: 20190305
  3. BUPROPION. [Concomitant]
     Active Substance: BUPROPION
     Dates: start: 20190301, end: 20190305
  4. CALCIUM [Concomitant]
     Active Substance: CALCIUM
     Dates: start: 20190303, end: 20190305
  5. LISINOPRIL. [Concomitant]
     Active Substance: LISINOPRIL
     Dates: start: 20190302, end: 20190302
  6. MORPHINE [Concomitant]
     Active Substance: MORPHINE
     Dates: start: 20190301, end: 20190304
  7. PIPERACILLIN/TAZOBACTAM [Concomitant]
     Active Substance: PIPERACILLIN SODIUM\TAZOBACTAM SODIUM
     Dates: start: 20190301, end: 20190305
  8. VANCOMYCIN [Suspect]
     Active Substance: VANCOMYCIN
     Indication: SEPSIS
     Dosage: ?          OTHER FREQUENCY:1X, THEN Q18HR;?
     Route: 041
     Dates: start: 20190302, end: 20190304
  9. VASOPRESSIN. [Concomitant]
     Active Substance: VASOPRESSIN
     Dates: start: 20190303, end: 20190304
  10. INSULIN [Concomitant]
     Active Substance: INSULIN NOS
     Dates: start: 20190301, end: 20190305
  11. AMITRIPTYLINE [Concomitant]
     Active Substance: AMITRIPTYLINE
     Dates: start: 20190301, end: 20190305
  12. TOPIRAMATE. [Concomitant]
     Active Substance: TOPIRAMATE
     Dates: start: 20190301, end: 20190305
  13. ACETAMINOPHEN. [Concomitant]
     Active Substance: ACETAMINOPHEN
     Dates: start: 20190301, end: 20190305
  14. ALBUTEROL. [Concomitant]
     Active Substance: ALBUTEROL
     Dates: start: 20190301, end: 20190301
  15. AFORMOTEROL [Concomitant]
     Active Substance: ARFORMOTEROL
     Dates: start: 20190301, end: 20190305
  16. HEPARIN 5,000 UNIT SUBQ [Concomitant]
     Dates: start: 20190301, end: 20190305
  17. IBUPROFEN. [Concomitant]
     Active Substance: IBUPROFEN
     Dates: start: 20190302, end: 20190303
  18. PANTOPRAZOLE [Concomitant]
     Active Substance: PANTOPRAZOLE
     Dates: start: 20190302, end: 20190305
  19. METHYLPREDNISOLONE. [Concomitant]
     Active Substance: METHYLPREDNISOLONE
     Dates: start: 20190304, end: 20190305
  20. NOREPINEPHRINE. [Concomitant]
     Active Substance: NOREPINEPHRINE
     Dates: start: 20190303, end: 20190303

REACTIONS (1)
  - Stevens-Johnson syndrome [None]

NARRATIVE: CASE EVENT DATE: 20190304
